FAERS Safety Report 8911485 (Version 3)
Quarter: 2013Q1

REPORT INFORMATION
  Report Type: Report from Study
  Country: FR (occurrence: FR)
  Receive Date: 20121116
  Receipt Date: 20130222
  Transmission Date: 20140127
  Serious: Yes (Hospitalization)
  Sender: FDA-Public Use
  Company Number: FR-MILLENNIUM PHARMACEUTICALS, INC.-2012-07989

PATIENT
  Sex: 0

DRUGS (5)
  1. VELCADE [Suspect]
     Indication: PLASMA CELL MYELOMA
     Dosage: 2.8 MG, UNK
     Route: 065
     Dates: start: 20120417, end: 20121030
  2. REVLIMID [Suspect]
     Indication: PLASMA CELL MYELOMA
     Dosage: 1.0 MG, UNK
     Route: 065
     Dates: start: 20120417, end: 201211
  3. DEXAMETHASONE [Suspect]
     Indication: PLASMA CELL MYELOMA
     Dosage: 10 MG, UNK
     Route: 065
     Dates: start: 20120417, end: 20121030
  4. AMOXICILLIN [Concomitant]
     Indication: INFECTION PROPHYLAXIS
     Dosage: UNK
     Route: 048
     Dates: start: 20121030
  5. INNOHEP                            /00889602/ [Concomitant]
     Indication: PROPHYLAXIS
     Dosage: UNK
     Route: 058
     Dates: start: 20121030

REACTIONS (1)
  - Encephalitis [Recovered/Resolved]
